FAERS Safety Report 25318554 (Version 2)
Quarter: 2025Q2

REPORT INFORMATION
  Report Type: Spontaneous
  Country: US (occurrence: US)
  Receive Date: 20250515
  Receipt Date: 20250613
  Transmission Date: 20250716
  Serious: Yes (Death)
  Sender: COHERUS
  Company Number: US-COHERUS BIOSCIENCES, INC-2025-COH-US000422

PATIENT

DRUGS (4)
  1. UDENYCA [Suspect]
     Active Substance: PEGFILGRASTIM-CBQV
     Indication: Prophylaxis
     Dosage: 6 MG, EVERY 14 DAYS
     Route: 058
     Dates: start: 20240124, end: 20240124
  2. UDENYCA [Suspect]
     Active Substance: PEGFILGRASTIM-CBQV
     Dosage: 6 MG,EVERY 14 DAYS
     Route: 058
     Dates: start: 20240417, end: 20240417
  3. UDENYCA [Suspect]
     Active Substance: PEGFILGRASTIM-CBQV
     Dosage: 6 MG, EVERY 14 DAYS
     Route: 058
     Dates: start: 20240501, end: 20240501
  4. UDENYCA [Suspect]
     Active Substance: PEGFILGRASTIM-CBQV
     Dosage: 6 MG, EVERY 14 DAYS
     Route: 058
     Dates: start: 20240515, end: 20240515

REACTIONS (1)
  - Death [Fatal]

NARRATIVE: CASE EVENT DATE: 20240615
